FAERS Safety Report 6174686-8 (Version None)
Quarter: 2009Q2

REPORT INFORMATION
  Report Type: 
  Country: None (occurrence: None)
  Receive Date: 20090430
  Receipt Date: 20090421
  Transmission Date: 20091009
  Serious: Yes (Hospitalization, Other)
  Sender: FDA-Public Use
  Company Number: DE-JNJFOC-20090404780

PATIENT
  Sex: Male
  Weight: 91 kg

DRUGS (12)
  1. GALANTAMIN [Suspect]
     Route: 048
  2. GALANTAMIN [Suspect]
     Route: 048
  3. GALANTAMIN [Suspect]
     Indication: DEMENTIA ALZHEIMER'S TYPE
     Route: 048
  4. RISPERDAL [Suspect]
     Indication: ABNORMAL BEHAVIOUR
     Route: 048
  5. RISPERDAL [Suspect]
     Indication: PERSONALITY CHANGE DUE TO A GENERAL MEDICAL CONDITION
     Route: 048
  6. DIPIPERON [Suspect]
     Indication: AGITATION
     Route: 048
  7. QUETIAPIN [Concomitant]
     Indication: DRUG USE FOR UNKNOWN INDICATION
     Route: 048
  8. VALPROIC ACID [Concomitant]
     Route: 042
  9. PROSTADIL [Concomitant]
     Route: 048
  10. TORSEMIDE [Concomitant]
     Route: 048
  11. HYDROCHLOROTHIAZIDE [Concomitant]
     Route: 048
  12. VESICARE [Concomitant]
     Route: 048

REACTIONS (10)
  - BLOOD CREATINE PHOSPHOKINASE INCREASED [None]
  - BRADYCARDIA [None]
  - FALL [None]
  - GENERAL PHYSICAL HEALTH DETERIORATION [None]
  - HYPOGLYCAEMIA [None]
  - HYPOTHERMIA [None]
  - PLATELET COUNT DECREASED [None]
  - RENAL FUNCTION TEST ABNORMAL [None]
  - SOMNOLENCE [None]
  - TRANSAMINASES INCREASED [None]
